FAERS Safety Report 14496272 (Version 1)
Quarter: 2018Q1

REPORT INFORMATION
  Report Type: Spontaneous
  Country: FR (occurrence: FR)
  Receive Date: 20180207
  Receipt Date: 20180207
  Transmission Date: 20180509
  Serious: Yes (Death, Hospitalization)
  Sender: FDA-Public Use
  Company Number: FR-ABBVIE-18P-056-2249023-00

PATIENT
  Age: 19 Year
  Sex: Female

DRUGS (11)
  1. ABILIFY [Suspect]
     Active Substance: ARIPIPRAZOLE
     Indication: PSYCHIATRIC DECOMPENSATION
     Route: 065
     Dates: start: 20171206, end: 20171206
  2. ZYPREXA [Suspect]
     Active Substance: OLANZAPINE
     Indication: PSYCHIATRIC DECOMPENSATION
     Route: 048
     Dates: start: 20171220, end: 20171227
  3. FLUANXOL [Suspect]
     Active Substance: FLUPENTIXOL
     Indication: PSYCHIATRIC DECOMPENSATION
     Route: 048
     Dates: start: 20171219, end: 20171227
  4. ASCABIOL [Concomitant]
     Active Substance: BENZYL BENZOATE
     Indication: PRODUCT USED FOR UNKNOWN INDICATION
     Route: 065
     Dates: start: 20171219, end: 20171219
  5. STILNOX [Suspect]
     Active Substance: ZOLPIDEM TARTRATE
     Indication: PSYCHIATRIC DECOMPENSATION
     Route: 048
     Dates: start: 20171219, end: 20171227
  6. THERALENE [Suspect]
     Active Substance: TRIMEPRAZINE
     Indication: PSYCHIATRIC DECOMPENSATION
     Route: 048
     Dates: start: 20171219, end: 20171227
  7. SPREGAL [Concomitant]
     Active Substance: PIPERONYL BUTOXIDE\S-BIOALLETHRIN
     Indication: PRODUCT USED FOR UNKNOWN INDICATION
     Route: 065
     Dates: start: 20171219, end: 20171219
  8. LOXAPAC [Concomitant]
     Active Substance: LOXAPINE
     Indication: PRODUCT USED FOR UNKNOWN INDICATION
     Route: 065
     Dates: start: 20171219, end: 20171219
  9. DEPAKINE [Suspect]
     Active Substance: VALPROATE SODIUM
     Indication: PSYCHIATRIC DECOMPENSATION
     Route: 048
     Dates: start: 20171220, end: 20171223
  10. IMODIUM [Concomitant]
     Active Substance: LOPERAMIDE HYDROCHLORIDE
     Indication: PRODUCT USED FOR UNKNOWN INDICATION
     Route: 065
     Dates: start: 20171220, end: 20171220
  11. VALIUM [Suspect]
     Active Substance: DIAZEPAM
     Indication: PSYCHIATRIC DECOMPENSATION
     Route: 048
     Dates: start: 20171219, end: 20171227

REACTIONS (1)
  - Cardio-respiratory arrest [Fatal]
